FAERS Safety Report 4768771-2 (Version None)
Quarter: 2005Q3

REPORT INFORMATION
  Report Type: 
  Country: None (occurrence: None)
  Receive Date: 20050913
  Receipt Date: 20050901
  Transmission Date: 20060218
  Serious: Yes (Other)
  Sender: FDA-Public Use
  Company Number: 2005123473

PATIENT
  Age: 60 Year
  Sex: Male
  Weight: 90.7194 kg

DRUGS (11)
  1. ZYRTEC [Suspect]
     Indication: MULTIPLE ALLERGIES
     Dosage: 10 MG (10 MG, 1 IN 1 D), ORAL
     Route: 048
     Dates: start: 19950101, end: 20050801
  2. LIPITOR [Suspect]
     Indication: ILL-DEFINED DISORDER
     Dates: start: 19970101
  3. CELEBREX [Suspect]
     Indication: ILL-DEFINED DISORDER
  4. BEXTRA [Suspect]
     Indication: ILL-DEFINED DISORDER
     Dates: end: 20050101
  5. AVANDIA [Concomitant]
  6. POTASSIUM CHLORIDE [Concomitant]
  7. LASIX [Concomitant]
  8. ASPIRIN [Concomitant]
  9. HYZAAR [Concomitant]
  10. PLAVIX [Concomitant]
  11. ATENOLOL [Concomitant]

REACTIONS (3)
  - ANGIOPLASTY [None]
  - DRUG INEFFECTIVE [None]
  - DRUG TOLERANCE [None]
